FAERS Safety Report 4866892-7 (Version None)
Quarter: 2005Q4

REPORT INFORMATION
  Report Type: 
  Country: None (occurrence: None)
  Receive Date: 20051222
  Receipt Date: 20051201
  Transmission Date: 20060501
  Serious: Yes (Death)
  Sender: FDA-Public Use
  Company Number: PL200512000334

PATIENT

DRUGS (4)
  1. PEMETREXED (PEMETREXED) VIAL [Suspect]
     Indication: BREAST CANCER
     Dosage: 2664 MG, INTRAVENOUS
     Route: 042
     Dates: start: 20051123
  2. CYCLOPHOSPHAMIDE [Suspect]
     Indication: BREAST CANCER
     Dosage: 888 MG
     Dates: start: 20051123
  3. FOLIC ACID [Concomitant]
  4. VITAMIN B12 [Concomitant]

REACTIONS (1)
  - FATIGUE [None]
